FAERS Safety Report 18063106 (Version 2)
Quarter: 2024Q2

REPORT INFORMATION
  Report Type: Spontaneous
  Country: FR (occurrence: FR)
  Receive Date: 20200724
  Receipt Date: 20240518
  Transmission Date: 20240716
  Serious: Yes (Hospitalization, Disabling, Other)
  Sender: FDA-Public Use
  Company Number: FR-CELLTRION INC.-2020FR024520

PATIENT

DRUGS (3)
  1. TRUXIMA [Suspect]
     Active Substance: RITUXIMAB-ABBS
     Indication: Lymphoma
     Dosage: UNK
     Route: 042
     Dates: start: 20180627, end: 20180718
  2. CYTARABINE [Suspect]
     Active Substance: CYTARABINE
     Indication: Lymphoma
     Dosage: UNK
     Route: 042
     Dates: start: 20180626, end: 20180718
  3. CARBOPLATIN [Suspect]
     Active Substance: CARBOPLATIN
     Indication: Lymphoma
     Dosage: UNK
     Route: 042
     Dates: start: 20180626, end: 20180717

REACTIONS (1)
  - Noninfectious myelitis [Not Recovered/Not Resolved]

NARRATIVE: CASE EVENT DATE: 20191101
